FAERS Safety Report 6520255-7 (Version None)
Quarter: 2009Q4

REPORT INFORMATION
  Report Type: 
  Country: None (occurrence: None)
  Receive Date: 20091229
  Receipt Date: 20091215
  Transmission Date: 20100525
  Serious: No
  Sender: FDA-Public Use
  Company Number: US-B.I. PHARMACEUTICALS,INC./RIDGEFIELD-2009-BP-14497BP

PATIENT
  Sex: Female

DRUGS (15)
  1. SPIRIVA [Suspect]
     Indication: CHRONIC OBSTRUCTIVE PULMONARY DISEASE
     Dosage: 18 MCG
     Route: 055
     Dates: start: 20060801, end: 20070801
  2. SPIRIVA [Suspect]
     Dosage: 18 MCG
     Route: 055
     Dates: start: 20070801
  3. PREDNISONE [Concomitant]
     Indication: ARTHRITIS
  4. FOSAMAX [Concomitant]
     Indication: OSTEOPOROSIS
  5. LISINOPRIL [Concomitant]
     Indication: HYPERTENSION
  6. THEOPHYLLINE [Concomitant]
     Indication: CHRONIC OBSTRUCTIVE PULMONARY DISEASE
  7. CHROMIUM PICOLINATE [Concomitant]
     Indication: SUPPLEMENTATION THERAPY
  8. CARVEDILOL [Concomitant]
     Indication: HYPERTENSION
  9. KLOR-CON [Concomitant]
     Indication: BLOOD POTASSIUM DECREASED
  10. CENTRUM [Concomitant]
     Indication: SUPPLEMENTATION THERAPY
  11. SINGULAIR [Concomitant]
     Indication: HYPERSENSITIVITY
  12. ULTRAM [Concomitant]
     Indication: ANALGESIC THERAPY
  13. LOVAZA [Concomitant]
     Indication: PROPHYLAXIS
  14. SUPER B VITAMIN SUPPLEMENT [Concomitant]
     Indication: PROPHYLAXIS
  15. OSCAL [Concomitant]
     Indication: OSTEOPOROSIS

REACTIONS (1)
  - DRY MOUTH [None]
